FAERS Safety Report 20690368 (Version 1)
Quarter: 2022Q2

REPORT INFORMATION
  Report Type: Spontaneous
  Country: US (occurrence: US)
  Receive Date: 20220408
  Receipt Date: 20220408
  Transmission Date: 20220721
  Serious: No
  Sender: FDA-Public Use
  Company Number: US-TAKEDA-2022TUS023282

PATIENT
  Sex: Male
  Weight: 66 kg

DRUGS (1)
  1. DEXILANT [Suspect]
     Active Substance: DEXLANSOPRAZOLE
     Indication: Abdominal pain
     Dosage: 60 MILLIGRAM, QD
     Route: 065

REACTIONS (4)
  - Frequent bowel movements [Unknown]
  - Off label use [Unknown]
  - Gastrointestinal pain [Unknown]
  - Flatulence [Unknown]
